FAERS Safety Report 15621326 (Version 2)
Quarter: 2018Q4

REPORT INFORMATION
  Report Type: Spontaneous
  Country: CZ (occurrence: CZ)
  Receive Date: 20181115
  Receipt Date: 20181121
  Transmission Date: 20190205
  Serious: Yes (Other)
  Sender: FDA-Public Use
  Company Number: CZ-INCYTE CORPORATION-2018IN011521

PATIENT

DRUGS (7)
  1. SPECTRUM [Concomitant]
     Active Substance: ALCOHOL
     Indication: INFECTION PROPHYLAXIS
     Dosage: UNK
     Route: 065
  2. JAKAVI [Suspect]
     Active Substance: RUXOLITINIB
     Dosage: UNK
     Route: 065
     Dates: start: 20181109
  3. JAKAVI [Suspect]
     Active Substance: RUXOLITINIB
     Dosage: UNK
  4. JAKAVI [Suspect]
     Active Substance: RUXOLITINIB
     Indication: GRAFT VERSUS HOST DISEASE
     Dosage: UNK
     Route: 065
     Dates: start: 20180816
  5. JAKAVI [Suspect]
     Active Substance: RUXOLITINIB
     Dosage: UNK
  6. JAKAVI [Suspect]
     Active Substance: RUXOLITINIB
     Dosage: UNK
  7. EUTHYROX [Concomitant]
     Active Substance: LEVOTHYROXINE SODIUM
     Indication: THYROID DISORDER
     Dosage: UNK
     Route: 065

REACTIONS (2)
  - Product use in unapproved indication [Unknown]
  - Osteonecrosis [Unknown]
